FAERS Safety Report 12762578 (Version 1)
Quarter: 2016Q3

REPORT INFORMATION
  Report Type: Spontaneous
  Country: US (occurrence: US)
  Receive Date: 20160920
  Receipt Date: 20160920
  Transmission Date: 20161109
  Serious: No
  Sender: FDA-Public Use
  Company Number: US-009507513-1609USA009478

PATIENT

DRUGS (3)
  1. SINGULAIR [Suspect]
     Active Substance: MONTELUKAST SODIUM
     Dosage: TITRATED UP TO 30 MG, QD
     Route: 048
  2. SINGULAIR [Suspect]
     Active Substance: MONTELUKAST SODIUM
     Indication: EOSINOPHILIC OESOPHAGITIS
     Dosage: 10 MG, QD
     Route: 048
  3. SINGULAIR [Suspect]
     Active Substance: MONTELUKAST SODIUM
     Dosage: 30 MG, QD
     Route: 048

REACTIONS (3)
  - Myalgia [Unknown]
  - Nausea [Unknown]
  - Off label use [Unknown]
